FAERS Safety Report 5265613-6 (Version None)
Quarter: 2007Q1

REPORT INFORMATION
  Report Type: 
  Country: None (occurrence: None)
  Receive Date: 20061213
  Receipt Date: 20020930
  Transmission Date: 20070707
  Serious: No
  Sender: FDA-Public Use
  Company Number: 2002UW12885

PATIENT
  Age: 58 Year
  Sex: Female
  Weight: 74.1631 kg

DRUGS (5)
  1. ARIMIDEX [Suspect]
     Indication: BREAST CANCER
     Dosage: 1 MG QD PO9
     Route: 048
     Dates: start: 19970819
  2. NOLVADEX [Suspect]
     Indication: BREAST CANCER
     Dosage: 20 MG QD PO
     Route: 048
     Dates: start: 19970819
  3. VITAMIN CAP [Concomitant]
  4. PAXIL [Concomitant]
  5. CLARITIN [Concomitant]

REACTIONS (1)
  - CATARACT [None]
